FAERS Safety Report 7901953-7 (Version None)
Quarter: 2011Q4

REPORT INFORMATION
  Report Type: 
  Country: None (occurrence: None)
  Receive Date: 20111108
  Receipt Date: 20111030
  Transmission Date: 20120403
  Serious: Yes (Hospitalization)
  Sender: FDA-Public Use
  Company Number: NZ-B.I. PHARMACEUTICALS,INC./RIDGEFIELD-2011-AU-01039AU

PATIENT
  Sex: Male
  Weight: 69 kg

DRUGS (9)
  1. CILAZAPRIL [Concomitant]
     Dosage: 5 MG
     Route: 048
  2. METOPROLOL [Concomitant]
     Dosage: 47.5 MG
     Route: 048
  3. FUROSEMIDE [Concomitant]
     Dosage: 40 MG
     Route: 048
  4. LIPITOR [Concomitant]
     Dosage: 10 MG
     Route: 048
  5. PARACETAMOL [Concomitant]
     Dosage: 1000 MG PRN
     Route: 048
  6. DIGOXIN [Concomitant]
     Dosage: 62.5 MCG
  7. GLYCERYL TRINITRATE [Concomitant]
     Dosage: SPRAY 1-2 SUBLINGUAL PRN
     Route: 060
  8. PRADAXA [Suspect]
     Indication: ATRIAL FIBRILLATION
     Dosage: 220 MG
     Dates: start: 20110819, end: 20110823
  9. ISMN [Concomitant]
     Dosage: 80 MG
     Route: 048

REACTIONS (4)
  - CONFUSIONAL STATE [None]
  - CHEST PAIN [None]
  - ODYNOPHAGIA [None]
  - INTERMITTENT CLAUDICATION [None]
